FAERS Safety Report 23722529 (Version 1)
Quarter: 2024Q2

REPORT INFORMATION
  Report Type: Spontaneous
  Country: US (occurrence: None)
  Receive Date: 20240408
  Receipt Date: 20240408
  Transmission Date: 20240715
  Serious: No
  Sender: FDA-Public Use
  Company Number: None

PATIENT
  Age: 37 Year
  Sex: Female
  Weight: 81 kg

DRUGS (9)
  1. TALTZ [Suspect]
     Active Substance: IXEKIZUMAB
     Indication: Spondylitis
     Dosage: 1 INJECTION ONE PER MONTH SUBCUTANEOUS?
     Route: 058
     Dates: start: 20231112
  2. PREDNISONE [Concomitant]
     Active Substance: PREDNISONE
  3. DAPSONE [Concomitant]
     Active Substance: DAPSONE
  4. IMURAN [Concomitant]
     Active Substance: AZATHIOPRINE
  5. SPIRONOLACTONE [Concomitant]
     Active Substance: SPIRONOLACTONE
  6. TYLENOL [Concomitant]
     Active Substance: ACETAMINOPHEN
  7. VITAMIN D [Concomitant]
     Active Substance: VITAMIN D NOS
  8. LACTASE [Concomitant]
     Active Substance: LACTASE
  9. ZYRTEC [Concomitant]
     Active Substance: CETIRIZINE HYDROCHLORIDE

REACTIONS (4)
  - Injection site reaction [None]
  - Injection site erythema [None]
  - Injection site swelling [None]
  - Injection site pruritus [None]
